FAERS Safety Report 22522447 (Version 2)
Quarter: 2023Q2

REPORT INFORMATION
  Report Type: Spontaneous
  Country: PL (occurrence: PL)
  Receive Date: 20230605
  Receipt Date: 20230630
  Transmission Date: 20230722
  Serious: Yes (Hospitalization)
  Sender: FDA-Public Use
  Company Number: PL-002147023-NVSC2023PL123843

PATIENT
  Sex: Female

DRUGS (1)
  1. KESIMPTA [Suspect]
     Active Substance: OFATUMUMAB
     Indication: Product used for unknown indication
     Dosage: UNK (APR)
     Route: 065

REACTIONS (5)
  - Condition aggravated [Unknown]
  - Adverse drug reaction [Unknown]
  - Product label confusion [Unknown]
  - Product storage error [Unknown]
  - Drug ineffective [Unknown]
